APPROVED DRUG PRODUCT: ERYTHROMYCIN ETHYLSUCCINATE
Active Ingredient: ERYTHROMYCIN ETHYLSUCCINATE
Strength: EQ 400MG BASE/5ML
Dosage Form/Route: SUSPENSION;ORAL
Application: A062674 | Product #001
Applicant: NASKA PHARMACAL CO INC DIV RUGBY DARBY GROUP COSMETICS
Approved: Mar 10, 1987 | RLD: No | RS: No | Type: DISCN